FAERS Safety Report 4852676-2 (Version None)
Quarter: 2005Q4

REPORT INFORMATION
  Report Type: 
  Country: None (occurrence: None)
  Receive Date: 20051213
  Receipt Date: 20050608
  Transmission Date: 20060501
  Serious: Yes (Hospitalization)
  Sender: FDA-Public Use
  Company Number: FR-MERCK-0506FRA00044

PATIENT
  Age: 76 Year
  Sex: Male

DRUGS (5)
  1. ZOCOR [Suspect]
     Indication: HYPERCHOLESTEROLAEMIA
     Route: 048
     Dates: start: 19950101
  2. SOTALOL HYDROCHLORIDE [Concomitant]
     Route: 048
  3. CISPLATIN [Suspect]
     Indication: LUNG NEOPLASM MALIGNANT
     Route: 051
     Dates: start: 20020101, end: 20030101
  4. CISPLATIN [Suspect]
     Indication: METASTASES TO BONE
     Route: 051
     Dates: start: 20020101, end: 20030101
  5. THALIDOMIDE [Concomitant]
     Route: 048
     Dates: end: 20030101

REACTIONS (3)
  - LUNG NEOPLASM MALIGNANT [None]
  - METASTASES TO BONE [None]
  - NEUROPATHY PERIPHERAL [None]
